FAERS Safety Report 16186047 (Version 1)
Quarter: 2019Q2

REPORT INFORMATION
  Report Type: Spontaneous
  Country: US (occurrence: US)
  Receive Date: 20190411
  Receipt Date: 20190411
  Transmission Date: 20190711
  Serious: Yes (Other)
  Sender: FDA-Public Use
  Company Number: US-GILEAD-2019-0401438

PATIENT
  Sex: Female

DRUGS (1)
  1. YESCARTA [Suspect]
     Active Substance: AXICABTAGENE CILOLEUCEL
     Indication: PRODUCT USED FOR UNKNOWN INDICATION
     Dosage: SINGLE DOSE
     Route: 042
     Dates: start: 201903, end: 201903

REACTIONS (4)
  - Cytokine release syndrome [Recovered/Resolved]
  - Pyrexia [Recovered/Resolved]
  - Hypotension [Unknown]
  - Hypotension [Recovered/Resolved]

NARRATIVE: CASE EVENT DATE: 2019
